FAERS Safety Report 6665428-8 (Version None)
Quarter: 2010Q1

REPORT INFORMATION
  Report Type: 
  Country: None (occurrence: None)
  Receive Date: 20100323
  Receipt Date: 20091230
  Transmission Date: 20100710
  Serious: Yes (Other)
  Sender: FDA-Public Use
  Company Number: 091230-0001272

PATIENT
  Age: 16 Year
  Sex: Male

DRUGS (9)
  1. SABRIL [Suspect]
     Indication: EPILEPSY
     Dosage: PO
     Route: 048
     Dates: start: 20091013, end: 20091019
  2. DILANTIN [Concomitant]
  3. KEPPRA [Concomitant]
  4. VIMPAT [Concomitant]
  5. CLONAZEPAM [Concomitant]
  6. CLORAZEPATE DIPOTASSIUM [Concomitant]
  7. NEXIUM [Concomitant]
  8. ZANTAC [Concomitant]
  9. DIASTAT [Concomitant]

REACTIONS (1)
  - CONVULSION [None]
